FAERS Safety Report 4454744-6 (Version None)
Quarter: 2004Q3

REPORT INFORMATION
  Report Type: 
  Country: None (occurrence: None)
  Receive Date: 20040920
  Receipt Date: 20040920
  Transmission Date: 20050211
  Serious: Yes (Hospitalization)
  Sender: FDA-Public Use
  Company Number: None

PATIENT
  Age: 58 Year
  Sex: Male
  Weight: 85 kg

DRUGS (3)
  1. LOVENOX [Suspect]
     Dosage: 90 MG BID SUBCUTANEOUS
     Route: 058
     Dates: start: 20040909, end: 20040911
  2. ASPIRIN [Suspect]
     Dosage: 325 MG QD ORAL
     Route: 048
     Dates: start: 20040907, end: 20040910
  3. HEPARIN [Concomitant]

REACTIONS (2)
  - HAEMATEMESIS [None]
  - MELAENA [None]
